FAERS Safety Report 6533296 (Version 5)
Quarter: 2013Q3

REPORT INFORMATION
  Report Type: Spontaneous
  Country: US (occurrence: US)
  Receive Date: 20080123
  Receipt Date: 20130816
  Transmission Date: 20140515
  Serious: Yes (Hospitalization, Disabling, Other)
  Sender: FDA-Public Use
  Company Number: US-ELI_LILLY_AND_COMPANY-US200605004101

PATIENT
  Age: 48 Year
  Sex: Female
  Weight: 80.27 kg

DRUGS (8)
  1. CYMBALTA [Suspect]
     Indication: PAIN
     Dosage: 60 MG, DAILY (1/D)
     Dates: start: 20060119, end: 20060310
  2. ARTHROTEC [Suspect]
     Indication: NECK PAIN
     Dosage: 1 D/F, EACH MORNING
     Dates: start: 200601, end: 20060310
  3. TRAZODONE [Concomitant]
     Indication: INSOMNIA
     Dosage: 100 MG, EACH EVENING
     Dates: start: 20060306, end: 20060310
  4. COLACE [Concomitant]
     Dosage: 100 MG, EACH EVENING
  5. OXYCODONE W/PARACETAMOL [Concomitant]
     Dosage: 1 D/F, UNK
  6. OXYCODONE [Concomitant]
     Dosage: 1 D/F, UNK
  7. ACETAMINOPHEN [Concomitant]
     Dosage: 1 D/F, UNK
  8. IBUPROFEN [Concomitant]
     Dosage: 1 D/F, UNK

REACTIONS (5)
  - Hepatitis cholestatic [Recovered/Resolved]
  - Paraesthesia [Unknown]
  - Hypotension [Unknown]
  - Fibromyalgia [Unknown]
  - Shoulder operation [Unknown]
